FAERS Safety Report 10932880 (Version 1)
Quarter: 2015Q1

REPORT INFORMATION
  Report Type: Spontaneous
  Country: US (occurrence: None)
  Receive Date: 20150212
  Receipt Date: 20150212
  Transmission Date: 20150721
  Serious: No
  Sender: FDA-Public Use
  Company Number: TPA2011A02206

PATIENT
  Age: 77 Year
  Sex: Female
  Weight: 83.92 kg

DRUGS (5)
  1. TIKOSYN [Suspect]
     Active Substance: DOFETILIDE
     Indication: ATRIAL FIBRILLATION
     Route: 048
     Dates: start: 201011
  2. ULORIC [Suspect]
     Active Substance: FEBUXOSTAT
     Indication: GOUT
     Route: 048
     Dates: start: 20110419, end: 20110426
  3. COLCRYS [Concomitant]
     Active Substance: COLCHICINE
  4. TOPROL XL [Concomitant]
     Active Substance: METOPROLOL SUCCINATE
  5. ZESTRIL (LISINOPRIL) [Concomitant]

REACTIONS (2)
  - Flatulence [None]
  - Diarrhoea [None]

NARRATIVE: CASE EVENT DATE: 20110507
